FAERS Safety Report 7438035-7 (Version None)
Quarter: 2011Q2

REPORT INFORMATION
  Report Type: 
  Country: None (occurrence: None)
  Receive Date: 20110426
  Receipt Date: 20110414
  Transmission Date: 20111010
  Serious: Yes (Hospitalization)
  Sender: FDA-Public Use
  Company Number: PHHY2011US34301

PATIENT
  Sex: Male

DRUGS (1)
  1. SANDIMMUNE [Suspect]
     Indication: RENAL FAILURE ACUTE
     Dosage: 125 MG
     Route: 048

REACTIONS (3)
  - DIVERTICULITIS [None]
  - CHEST PAIN [None]
  - ABDOMINAL PAIN UPPER [None]
